FAERS Safety Report 8543465-6 (Version None)
Quarter: 2012Q3

REPORT INFORMATION
  Report Type: 
  Country: None (occurrence: None)
  Receive Date: 20120727
  Receipt Date: 20120723
  Transmission Date: 20120928
  Serious: Yes (Other)
  Sender: FDA-Public Use
  Company Number: PHHY2012FR064406

PATIENT
  Sex: Male

DRUGS (4)
  1. PRAMIPEXOLE DIHYDROCHLORIDE [Interacting]
     Indication: PARKINSON'S DISEASE
     Dosage: 4 DF, DAILY
     Dates: start: 20080101
  2. PRAMIPEXOLE DIHYDROCHLORIDE [Interacting]
     Dosage: 3 DF, DAILY
  3. STALEVO 100 [Suspect]
     Indication: PARKINSON'S DISEASE
     Dosage: 3 DF, DAILY
     Route: 048
     Dates: start: 20080101
  4. AZILECT [Interacting]
     Indication: PARKINSON'S DISEASE
     Dosage: 1 DF, DAILY
     Route: 048
     Dates: start: 20111201

REACTIONS (3)
  - DRUG INTERACTION [None]
  - HYPERSEXUALITY [None]
  - PATHOLOGICAL GAMBLING [None]
